FAERS Safety Report 9549252 (Version 1)
Quarter: 2013Q2

REPORT INFORMATION
  Report Type: Spontaneous
  Country: US (occurrence: None)
  Receive Date: 20130627
  Receipt Date: 20130627
  Transmission Date: 20140414
  Serious: No
  Sender: FDA-Public Use
  Company Number: 1000043870

PATIENT
  Age: 73 Year
  Sex: Male

DRUGS (10)
  1. LINZESS (LINACLOTIDE) (145 MICROGRAM, CAPSULES) [Suspect]
     Indication: CONSTIPATION
     Dosage: 145 MCG (145 MCG, 1 IN 1 D), ORAL
     Route: 048
     Dates: start: 20130325
  2. NOVOLOG (INSULIN ASPART) (INSULIN ASPART) [Concomitant]
  3. LANTUS (INSULIN GLARGINE) (INSULIN GLARGINE) [Concomitant]
  4. METOPROLOL (METOPROLOL) (METOPROLOL) [Concomitant]
  5. LISINOPRIL (LISINOPRIL) (LISINOPRIL) [Concomitant]
  6. CLONIDINE (CLONIDINE) (CLONIDINE) [Concomitant]
  7. JANUVIA (SITAGLIPTIN PHOSPHATE) (SITAGLIPTIN PHOSPHATE) [Concomitant]
  8. CLOPIDOGREL (CLOPIDOGREL) (CLOPIDOGREL) [Concomitant]
  9. CRESTOR (ROSUVASTATIN CALCIUM) (ROSUVASTATIN CALCIUM) [Concomitant]
  10. HYDROCHLOROTHIAZIDE (HYDROCHLOROTHIAZIDE) ( (HYDROCHLOROTHIAZIDE) [Concomitant]

REACTIONS (1)
  - Flatulence [None]
